FAERS Safety Report 9816446 (Version 2)
Quarter: 2014Q1

REPORT INFORMATION
  Report Type: Spontaneous
  Country: US (occurrence: US)
  Receive Date: 20140114
  Receipt Date: 20140114
  Transmission Date: 20141002
  Serious: Yes (Hospitalization)
  Sender: FDA-Public Use
  Company Number: US-B.I. PHARMACEUTICALS,INC./RIDGEFIELD-2013-BI-22483BP

PATIENT
  Sex: Female
  Weight: 84.37 kg

DRUGS (6)
  1. PRADAXA [Suspect]
     Indication: ATRIAL FIBRILLATION
     Dosage: 300 MG
     Dates: start: 20110330, end: 20120714
  2. METOPROLOL [Concomitant]
     Dosage: 100 MG
  3. LISINOPRIL [Concomitant]
     Dosage: 10 MG
  4. FUROSEMIDE [Concomitant]
     Dosage: 20 MG
  5. POTASSIUM CHLORIDE [Concomitant]
     Dosage: 10 MEQ
  6. NIACIN [Concomitant]

REACTIONS (2)
  - Lower gastrointestinal haemorrhage [Unknown]
  - Haemorrhagic anaemia [Unknown]
